FAERS Safety Report 11531040 (Version 1)
Quarter: 2015Q3

REPORT INFORMATION
  Report Type: Report from Study
  Country: FR (occurrence: FR)
  Receive Date: 20150921
  Receipt Date: 20150921
  Transmission Date: 20151125
  Serious: Yes (Other)
  Sender: FDA-Public Use
  Company Number: FR-009507513-1412FRA011819

PATIENT
  Age: 64 Year
  Sex: Male
  Weight: 73 kg

DRUGS (1)
  1. PEMBROLIZUMAB. [Suspect]
     Active Substance: PEMBROLIZUMAB
     Indication: MALIGNANT MELANOMA
     Dosage: 2 MG/KG, UNK, STRENGTH: 50 MG, FORMULATION: POWDER FOR SOLUTION FOR INFUSION
     Route: 042
     Dates: start: 20140715

REACTIONS (4)
  - Blood bilirubin abnormal [Recovered/Resolved]
  - Vitiligo [Not Recovered/Not Resolved]
  - Cutaneous sarcoidosis [Not Recovered/Not Resolved]
  - Dry mouth [Not Recovered/Not Resolved]

NARRATIVE: CASE EVENT DATE: 201409
